FAERS Safety Report 5202075-9 (Version None)
Quarter: 2007Q1

REPORT INFORMATION
  Report Type: 
  Country: None (occurrence: None)
  Receive Date: 20070103
  Receipt Date: 20061222
  Transmission Date: 20070707
  Serious: Yes (Hospitalization, Other)
  Sender: FDA-Public Use
  Company Number: HQWYE006122DEC06

PATIENT
  Age: 83 Year
  Sex: Male

DRUGS (9)
  1. CORDARONE [Suspect]
     Indication: CARDIOMYOPATHY
     Dosage: 200 MG 5X PER 1 WK ORAL
     Route: 048
  2. CORDARONE [Suspect]
     Indication: HYPERTENSION
     Dosage: 200 MG 5X PER 1 WK ORAL
     Route: 048
  3. CALCIPARINE [Suspect]
     Indication: ATRIAL FIBRILLATION
     Dosage: 0.8 ML 2X PER 1 DAY SC
     Route: 058
     Dates: start: 20060804, end: 20060809
  4. CALCIPARINE [Suspect]
     Indication: ATRIAL FLUTTER
     Dosage: 0.8 ML 2X PER 1 DAY SC
     Route: 058
     Dates: start: 20060804, end: 20060809
  5. SIMVASTATIN [Suspect]
     Indication: HYPERCHOLESTEROLAEMIA
     Dosage: 20 MG 1X PER 1 DAY, ORAL
     Route: 048
  6. SINTROM [Suspect]
     Indication: ATRIAL FIBRILLATION
     Dosage: 1 MG 1X PER 1 DAY, ORAL
     Route: 048
     Dates: end: 20060808
  7. SINTROM [Suspect]
     Indication: ATRIAL FLUTTER
     Dosage: 1 MG 1X PER 1 DAY, ORAL
     Route: 048
     Dates: end: 20060808
  8. ALLOPURINOL [Suspect]
     Indication: DRUG USE FOR UNKNOWN INDICATION
     Dosage: 300 MG 1X PER 1 DAY, ORAL
     Route: 048
  9. LASIX [Concomitant]

REACTIONS (6)
  - ACTIVATED PARTIAL THROMBOPLASTIN TIME PROLONGED [None]
  - DISEASE RECURRENCE [None]
  - DRUG INTERACTION [None]
  - HAEMOGLOBIN DECREASED [None]
  - MOUTH HAEMORRHAGE [None]
  - RENAL FAILURE [None]
